FAERS Safety Report 5756617-5 (Version None)
Quarter: 2008Q2

REPORT INFORMATION
  Report Type: 
  Country: None (occurrence: None)
  Receive Date: 20080603
  Receipt Date: 20080528
  Transmission Date: 20081010
  Serious: Yes (Death)
  Sender: FDA-Public Use
  Company Number: JP-BRISTOL-MYERS SQUIBB COMPANY-14188049

PATIENT
  Age: 73 Year
  Sex: Male

DRUGS (6)
  1. TAXOL [Suspect]
     Indication: LUNG NEOPLASM MALIGNANT
     Dosage: TAXOL INJ 100MG VIAL 1
     Route: 041
     Dates: start: 20080508, end: 20080508
  2. CARBOMERCK [Concomitant]
     Route: 042
     Dates: start: 20080508, end: 20080508
  3. DECADRON [Concomitant]
     Route: 042
     Dates: start: 20080508, end: 20080508
  4. POLARAMINE [Concomitant]
     Route: 042
     Dates: start: 20080508, end: 20080508
  5. GAMOFA [Concomitant]
     Route: 042
     Dates: start: 20080508, end: 20080508
  6. SEROTONE [Concomitant]
     Route: 042
     Dates: start: 20080508, end: 20080508

REACTIONS (2)
  - ARRHYTHMIA [None]
  - CARDIAC ARREST [None]
